FAERS Safety Report 13355775 (Version 1)
Quarter: 2017Q1

REPORT INFORMATION
  Report Type: Spontaneous
  Country: CN (occurrence: CN)
  Receive Date: 20170321
  Receipt Date: 20170321
  Transmission Date: 20170429
  Serious: Yes (Other)
  Sender: FDA-Public Use
  Company Number: CN-NOVOPROD-536195

PATIENT
  Age: 60 Year
  Sex: Male

DRUGS (1)
  1. NOVOMIX 30 PENFILL [Suspect]
     Active Substance: INSULIN ASPART
     Indication: DIABETES MELLITUS
     Dosage: 18 U, BID
     Route: 058
     Dates: start: 20161026, end: 20161222

REACTIONS (7)
  - Skin mass [Recovered/Resolved]
  - Chest discomfort [Recovered/Resolved]
  - Somnolence [Recovered/Resolved]
  - Abdominal distension [Recovered/Resolved]
  - Dyspnoea [Recovered/Resolved]
  - Hypoaesthesia [Recovered/Resolved]
  - Injection site nodule [Recovered/Resolved]

NARRATIVE: CASE EVENT DATE: 20161103
